FAERS Safety Report 9684885 (Version 3)
Quarter: 2014Q1

REPORT INFORMATION
  Report Type: Report from Study
  Country: US (occurrence: US)
  Receive Date: 20131112
  Receipt Date: 20140310
  Transmission Date: 20141002
  Serious: Yes (Other)
  Sender: FDA-Public Use
  Company Number: US-ROCHE-1297636

PATIENT
  Sex: Female

DRUGS (2)
  1. CELLCEPT [Suspect]
     Indication: MULTIPLE SCLEROSIS
     Dosage: DRUG INDICATION: 340 MULTIPLE SCLEROSIS
     Route: 048
     Dates: start: 2008
  2. MYCOPHENOLATE MOFETIL [Concomitant]

REACTIONS (6)
  - Feeling hot [Recovered/Resolved]
  - Cerebrovascular accident [Unknown]
  - Malaise [Unknown]
  - Abasia [Unknown]
  - Pruritus [Unknown]
  - Pain [Unknown]
